FAERS Safety Report 16921277 (Version 12)
Quarter: 2023Q2

REPORT INFORMATION
  Report Type: Spontaneous
  Country: US (occurrence: US)
  Receive Date: 20191015
  Receipt Date: 20230525
  Transmission Date: 20230721
  Serious: Yes (Hospitalization)
  Sender: FDA-Public Use
  Company Number: US-SA-2019SA282454

PATIENT
  Age: 19 Year
  Sex: Male
  Weight: 45.351 kg

DRUGS (10)
  1. FABRAZYME [Suspect]
     Active Substance: AGALSIDASE BETA
     Indication: Fabry^s disease
     Dosage: 45 MG, QOW
     Route: 041
     Dates: start: 201606, end: 2016
  2. FABRAZYME [Suspect]
     Active Substance: AGALSIDASE BETA
     Dosage: (5 MG STRENGTH) 35 MG, QOW
     Route: 041
     Dates: start: 201606, end: 2016
  3. FABRAZYME [Suspect]
     Active Substance: AGALSIDASE BETA
     Dosage: 10 MG
     Route: 041
     Dates: end: 2016
  4. FABRAZYME [Suspect]
     Active Substance: AGALSIDASE BETA
     Dosage: 25 MG, QW (STRENGTH: 5 MG)
     Route: 042
     Dates: start: 20160914
  5. FABRAZYME [Suspect]
     Active Substance: AGALSIDASE BETA
     Dosage: 45 MG, QOW
     Route: 041
     Dates: start: 20160914, end: 2019
  6. FABRAZYME [Suspect]
     Active Substance: AGALSIDASE BETA
     Dosage: 45 MG, QOW
     Route: 041
     Dates: start: 2019, end: 2019
  7. FABRAZYME [Suspect]
     Active Substance: AGALSIDASE BETA
     Dosage: 45 MG, QOW
     Route: 041
     Dates: end: 2020
  8. FABRAZYME [Suspect]
     Active Substance: AGALSIDASE BETA
     Dosage: 45 MG, QOW
     Route: 041
     Dates: start: 202002
  9. FABRAZYME [Suspect]
     Active Substance: AGALSIDASE BETA
     Dosage: 25 MG, QW
     Route: 041
  10. FABRAZYME [Suspect]
     Active Substance: AGALSIDASE BETA
     Dosage: 50 MG, QOW
     Route: 042
     Dates: start: 202202, end: 2023

REACTIONS (11)
  - Pain in extremity [Unknown]
  - Arthralgia [Unknown]
  - Ocular hyperaemia [Unknown]
  - Sneezing [Unknown]
  - Weight decreased [Unknown]
  - Illness [Unknown]
  - COVID-19 [Unknown]
  - Malaise [Unknown]
  - Rhinorrhoea [Unknown]
  - Arthralgia [Unknown]
  - Inappropriate schedule of product administration [Unknown]

NARRATIVE: CASE EVENT DATE: 20160914
